FAERS Safety Report 25176702 (Version 1)
Quarter: 2025Q2

REPORT INFORMATION
  Report Type: Spontaneous
  Country: JP (occurrence: JP)
  Receive Date: 20250409
  Receipt Date: 20250409
  Transmission Date: 20250717
  Serious: Yes (Hospitalization)
  Sender: BOEHRINGER INGELHEIM
  Company Number: JP-NBI-2025-BI-020764

PATIENT
  Age: 77 Year
  Sex: Male

DRUGS (1)
  1. LINAGLIPTIN [Suspect]
     Active Substance: LINAGLIPTIN
     Indication: Diabetes mellitus

REACTIONS (4)
  - Hypoglycaemia [Unknown]
  - Loss of consciousness [Recovered/Resolved]
  - Hyperhidrosis [Unknown]
  - Anxiety [Unknown]
